FAERS Safety Report 9263967 (Version 8)
Quarter: 2014Q3

REPORT INFORMATION
  Report Type: Spontaneous
  Country: US (occurrence: US)
  Receive Date: 20130430
  Receipt Date: 20140820
  Transmission Date: 20150326
  Serious: Yes (Hospitalization, Disabling, Other)
  Sender: FDA-Public Use
  Company Number: US-009507513-1304USA014026

PATIENT
  Sex: Female
  Weight: 131.52 kg

DRUGS (3)
  1. NUVARING [Suspect]
     Active Substance: ETHINYL ESTRADIOL\ETONOGESTREL
     Dosage: UNK
     Route: 067
     Dates: start: 20090822, end: 201110
  2. NUVARING [Suspect]
     Active Substance: ETHINYL ESTRADIOL\ETONOGESTREL
     Indication: CONTRACEPTION
     Dosage: UNK
     Route: 067
     Dates: start: 20080118, end: 200811
  3. NUVARING [Suspect]
     Active Substance: ETHINYL ESTRADIOL\ETONOGESTREL
     Indication: MENSTRUAL CYCLE MANAGEMENT
     Dosage: UNK
     Route: 067
     Dates: start: 20090129, end: 200906

REACTIONS (31)
  - Pulmonary embolism [Unknown]
  - Pulmonary infarction [Unknown]
  - Off label use [Unknown]
  - Metrorrhagia [Unknown]
  - Haemoptysis [Unknown]
  - Vena cava filter insertion [Unknown]
  - Menorrhagia [Unknown]
  - Pneumonitis [Unknown]
  - International normalised ratio increased [Unknown]
  - Libido decreased [Recovering/Resolving]
  - Menopausal symptoms [Unknown]
  - Thrombectomy [Unknown]
  - Arthralgia [Unknown]
  - Menstruation irregular [Unknown]
  - Vena cava thrombosis [Unknown]
  - Hypoaesthesia [Unknown]
  - Uterine leiomyoma [Unknown]
  - Inappropriate schedule of drug administration [Unknown]
  - Protein S deficiency [Unknown]
  - Pneumonia [Unknown]
  - Tachycardia [Unknown]
  - Vena cava filter insertion [Recovered/Resolved]
  - Female sterilisation [Unknown]
  - Hypertension [Unknown]
  - Endometriosis [Unknown]
  - Foot fracture [Unknown]
  - Endometrial ablation [Unknown]
  - Oedema peripheral [Unknown]
  - Polycystic ovaries [Unknown]
  - Coagulopathy [Not Recovered/Not Resolved]
  - Nausea [Unknown]

NARRATIVE: CASE EVENT DATE: 20080118
